FAERS Safety Report 7075346-1 (Version None)
Quarter: 2010Q4

REPORT INFORMATION
  Report Type: 
  Country: None (occurrence: None)
  Receive Date: 20101030
  Receipt Date: 20100928
  Transmission Date: 20110411
  Serious: No
  Sender: FDA-Public Use
  Company Number: US-WYE-H17087910

PATIENT
  Age: 49 Year
  Sex: Female
  Weight: 65.83 kg

DRUGS (2)
  1. ADVIL PM [Suspect]
     Indication: HEADACHE
     Dosage: 2 CAPSULES X 1
     Route: 048
     Dates: start: 20100818, end: 20100818
  2. ADVIL PM [Suspect]
     Indication: INSOMNIA

REACTIONS (1)
  - DRUG INEFFECTIVE [None]
